FAERS Safety Report 6176827-5 (Version None)
Quarter: 2009Q2

REPORT INFORMATION
  Report Type: 
  Country: None (occurrence: None)
  Receive Date: 20090501
  Receipt Date: 20090424
  Transmission Date: 20091009
  Serious: Yes (Other)
  Sender: FDA-Public Use
  Company Number: PHEH2007US12073

PATIENT
  Sex: Female

DRUGS (7)
  1. ZOMETA [Suspect]
     Indication: MULTIPLE MYELOMA
     Dosage: 4MG MONTHLY
  2. AREDIA [Suspect]
     Dosage: 90MG MONTHLY
  3. NEURONTIN [Concomitant]
     Dosage: 300MG
  4. LORAZEPAM [Concomitant]
     Dosage: 0.05MG TWICE DAILY
  5. BENTYL [Concomitant]
     Dosage: 10MG TWICE DAILY
  6. PREVACID [Concomitant]
     Dosage: 25MG DAILY
  7. AMBIEN [Concomitant]

REACTIONS (21)
  - ANAEMIA [None]
  - ANHEDONIA [None]
  - ANXIETY [None]
  - AORTIC VALVE SCLEROSIS [None]
  - BONE PAIN [None]
  - DEFORMITY [None]
  - DENTAL CARIES [None]
  - DISCOMFORT [None]
  - EMOTIONAL DISTRESS [None]
  - HYPOPHAGIA [None]
  - INJURY [None]
  - JOINT STIFFNESS [None]
  - LEFT ATRIAL DILATATION [None]
  - MITRAL VALVE SCLEROSIS [None]
  - MOUTH ULCERATION [None]
  - OSTEONECROSIS [None]
  - PAIN [None]
  - SENSITIVITY OF TEETH [None]
  - SWELLING [None]
  - TOOTH REPAIR [None]
  - TRICUSPID VALVE INCOMPETENCE [None]
